FAERS Safety Report 6878334-0 (Version None)
Quarter: 2010Q3

REPORT INFORMATION
  Report Type: 
  Country: None (occurrence: None)
  Receive Date: 20100728
  Receipt Date: 20100719
  Transmission Date: 20110219
  Serious: Yes (Other)
  Sender: FDA-Public Use
  Company Number: US-JNJFOC-20100706511

PATIENT
  Sex: Female

DRUGS (4)
  1. DURAGESIC-100 [Suspect]
     Indication: BACK PAIN
     Dosage: 100UG/HR+75UG/HR
     Route: 062
  2. DURAGESIC-100 [Suspect]
     Dosage: 100UG/HR+75UG/HR
     Route: 062
  3. DURAGESIC-100 [Suspect]
     Dosage: 100UG/HR+100UG/HR
     Route: 062
  4. METHADONE HCL [Concomitant]
     Indication: PAIN
     Route: 048

REACTIONS (4)
  - DERMATITIS CONTACT [None]
  - DRUG EFFECT DECREASED [None]
  - INTERVERTEBRAL DISC PROTRUSION [None]
  - MUSCULAR WEAKNESS [None]
